FAERS Safety Report 19864828 (Version 3)
Quarter: 2022Q3

REPORT INFORMATION
  Report Type: Spontaneous
  Country: JP (occurrence: JP)
  Receive Date: 20210921
  Receipt Date: 20220712
  Transmission Date: 20221027
  Serious: Yes (Death, Hospitalization)
  Sender: FDA-Public Use
  Company Number: JP-PFIZER INC-202101212412

PATIENT
  Age: 44 Year
  Sex: Female
  Weight: 55.7 kg

DRUGS (5)
  1. LORLATINIB [Suspect]
     Active Substance: LORLATINIB
     Indication: Non-small cell lung cancer
     Dosage: 100 MG, DAILY
     Dates: start: 20190706, end: 20190726
  2. LORLATINIB [Suspect]
     Active Substance: LORLATINIB
     Dosage: UNK
     Dates: start: 20190819, end: 20200401
  3. CARBAZOCHROME SODIUM SULFONATE [Concomitant]
     Active Substance: CARBAZOCHROME SODIUM SULFONATE
     Indication: Haemorrhage
     Dosage: 100 MG, 2X/DAY
     Route: 041
     Dates: start: 20190629, end: 20190703
  4. TRANSAMIN [Concomitant]
     Active Substance: TRANEXAMIC ACID
     Indication: Haemorrhage
     Dosage: 100 MG, 2X/DAY
     Route: 041
     Dates: start: 20190629, end: 20190703
  5. PIPERACILLIN SODIUM\TAZOBACTAM SODIUM [Concomitant]
     Active Substance: PIPERACILLIN SODIUM\TAZOBACTAM SODIUM
     Indication: Pneumonia
     Dosage: 4.5 G, 3X/DAY
     Route: 041
     Dates: start: 20190630, end: 20190703

REACTIONS (8)
  - Neoplasm progression [Fatal]
  - Pneumonia [Unknown]
  - Hyperlipidaemia [Recovered/Resolved]
  - Hypercholesterolaemia [Unknown]
  - Hypertriglyceridaemia [Unknown]
  - Wheezing [Unknown]
  - Pyrexia [Unknown]
  - Atelectasis [Recovering/Resolving]

NARRATIVE: CASE EVENT DATE: 20190711
